FAERS Safety Report 8451211-X (Version None)
Quarter: 2012Q2

REPORT INFORMATION
  Report Type: 
  Country: None (occurrence: None)
  Receive Date: 20120620
  Receipt Date: 20120313
  Transmission Date: 20120825
  Serious: No
  Sender: FDA-Public Use
  Company Number: US-VERTEX PHARMACEUTICALS INC.-AE-2011-005324

PATIENT
  Sex: Female
  Weight: 97.156 kg

DRUGS (9)
  1. SYNTHROID [Concomitant]
     Indication: THYROID DISORDER
     Route: 048
  2. ASCORBIC ACID [Concomitant]
     Indication: MEDICAL DIET
     Route: 048
  3. RIBASPHERE [Concomitant]
     Indication: HEPATITIS C
     Route: 048
     Dates: start: 20111028
  4. VITAMIN B COMPLEX CAP [Concomitant]
     Indication: MEDICAL DIET
     Route: 048
  5. PULMICORT [Concomitant]
     Indication: WHEEZING
  6. VITAMIN D [Concomitant]
     Indication: MEDICAL DIET
     Route: 048
  7. NASALCROM [Concomitant]
  8. INCIVEK [Suspect]
     Indication: HEPATITIS C
     Route: 048
     Dates: start: 20111028
  9. PEGASYS [Concomitant]
     Indication: HEPATITIS C
     Route: 058
     Dates: start: 20111028

REACTIONS (3)
  - ANAL PRURITUS [None]
  - FOOD CRAVING [None]
  - WEIGHT INCREASED [None]
